FAERS Safety Report 7037687-3 (Version None)
Quarter: 2010Q4

REPORT INFORMATION
  Report Type: 
  Country: None (occurrence: None)
  Receive Date: 20101011
  Receipt Date: 20100926
  Transmission Date: 20110411
  Serious: Yes (Disabling)
  Sender: FDA-Public Use
  Company Number: CA-ELI_LILLY_AND_COMPANY-CA201009007284

PATIENT
  Age: 71 Year
  Sex: Female

DRUGS (9)
  1. FORTEO [Suspect]
     Indication: OSTEOPOROSIS
     Dosage: 20 UG, DAILY (1/D)
     Route: 058
     Dates: start: 20090829
  2. ATORVASTATIN [Concomitant]
     Dosage: 200 MG, UNK
  3. HYDROMORPHONE HCL [Concomitant]
     Dosage: 3 MG, AS NEEDED
  4. MELOXICAM [Concomitant]
     Dosage: 15 MG, UNK
  5. TRAZODONE HCL [Concomitant]
     Dosage: 50 MG, UNK
  6. ACCUPRIL [Concomitant]
     Dosage: 40 MG, UNK
  7. CALCIUM [Concomitant]
     Dosage: 1200 MG, UNK
  8. HYDROCHLOROTHIAZIDE [Concomitant]
     Dosage: 25 MG, UNK
  9. VITAMIN D3 [Concomitant]
     Dosage: 1200 IU, UNK

REACTIONS (2)
  - ABASIA [None]
  - SPINAL COMPRESSION FRACTURE [None]
